FAERS Safety Report 23662429 (Version 1)
Quarter: 2024Q1

REPORT INFORMATION
  Report Type: Other
  Country: GR (occurrence: GR)
  Receive Date: 20240322
  Receipt Date: 20240322
  Transmission Date: 20240410
  Serious: Yes (Other)
  Sender: FDA-Public Use
  Company Number: GR-Merck Healthcare KGaA-2024013975

PATIENT
  Age: 14 Year
  Sex: Female

DRUGS (2)
  1. INTERFERON BETA-1A [Suspect]
     Active Substance: INTERFERON BETA-1A
     Indication: Multiple sclerosis
  2. INTERFERON BETA-1A [Suspect]
     Active Substance: INTERFERON BETA-1A

REACTIONS (3)
  - Retinopathy [Recovered/Resolved]
  - Dysmetria [Unknown]
  - Hypoaesthesia [Unknown]
